FAERS Safety Report 9452443 (Version 3)
Quarter: 2013Q3

REPORT INFORMATION
  Report Type: Spontaneous
  Country: US (occurrence: US)
  Receive Date: 20130812
  Receipt Date: 20130826
  Transmission Date: 20140515
  Serious: Yes (Hospitalization)
  Sender: FDA-Public Use
  Company Number: US-JNJFOC-20130800683

PATIENT
  Age: 70 Year
  Sex: Female
  Weight: 56.3 kg

DRUGS (4)
  1. XARELTO [Suspect]
     Indication: DEEP VEIN THROMBOSIS
     Route: 048
     Dates: start: 20130508, end: 20130510
  2. DIFLUCAN [Concomitant]
     Route: 065
  3. BACTRIM DS [Concomitant]
     Route: 065
  4. FISH OIL [Concomitant]
     Route: 065

REACTIONS (6)
  - Abdominal pain [Unknown]
  - Drug-induced liver injury [Recovered/Resolved]
  - Renal failure acute [Recovering/Resolving]
  - Coagulopathy [Unknown]
  - Abdominal wall haematoma [Recovering/Resolving]
  - Haemorrhage [Unknown]
